FAERS Safety Report 4574706-8 (Version None)
Quarter: 2005Q1

REPORT INFORMATION
  Report Type: 
  Country: None (occurrence: None)
  Receive Date: 20050208
  Receipt Date: 20040706
  Transmission Date: 20050727
  Serious: No
  Sender: FDA-Public Use
  Company Number: US-GLAXOSMITHKLINE-A0517208A

PATIENT
  Sex: Female

DRUGS (2)
  1. PAXIL [Suspect]
     Indication: DEPRESSION
     Dosage: 40MG UNKNOWN
     Route: 048
     Dates: start: 20000101
  2. UNSPECIFIED MEDICATIONS [Concomitant]

REACTIONS (8)
  - DIARRHOEA [None]
  - DRUG WITHDRAWAL SYNDROME [None]
  - FEELING HOT AND COLD [None]
  - INSOMNIA [None]
  - NAUSEA [None]
  - NIGHTMARE [None]
  - PHOTOSENSITIVITY REACTION [None]
  - VOMITING [None]
